FAERS Safety Report 21391276 (Version 1)
Quarter: 2022Q3

REPORT INFORMATION
  Report Type: Report from Study
  Country: US (occurrence: US)
  Receive Date: 20220929
  Receipt Date: 20220929
  Transmission Date: 20221027
  Serious: Yes (Other)
  Sender: FDA-Public Use
  Company Number: US-PFIZER INC-PV202200066293

PATIENT
  Sex: Female

DRUGS (1)
  1. FLUCONAZOLE [Suspect]
     Active Substance: FLUCONAZOLE
     Indication: Electrocardiogram QT prolonged
     Dosage: UNK

REACTIONS (1)
  - Long QT syndrome [Unknown]
